FAERS Safety Report 21765679 (Version 1)
Quarter: 2022Q4

REPORT INFORMATION
  Report Type: Spontaneous
  Country: BE (occurrence: BE)
  Receive Date: 20221222
  Receipt Date: 20221222
  Transmission Date: 20230112
  Serious: Yes (Other)
  Sender: FDA-Public Use
  Company Number: None

PATIENT
  Age: 47 Year
  Sex: Female
  Weight: 57 kg

DRUGS (5)
  1. KISQALI [Suspect]
     Active Substance: RIBOCICLIB
     Indication: Breast cancer metastatic
     Dosage: 600 MG, QD (FIRST CYCLE: 600 MG/DAY IN 1 DOSE DURING 21 DAYS + 1 WEEK ^S REST)
     Route: 048
     Dates: start: 20210126
  2. KISQALI [Suspect]
     Active Substance: RIBOCICLIB
     Indication: Breast cancer recurrent
     Dosage: 600 MG, QD (2ND CYCLE: 600 MG/DAY IN 1 DOSE DURING 21 DAYS + 1 WEEK ^S REST)
     Route: 048
  3. KISQALI [Suspect]
     Active Substance: RIBOCICLIB
     Dosage: UNK, THIRD CYCLE : DOSE DECREASED BY ONE STEP (DRUG WITHDRAWN AFTER 3 CYCLES OF TREATMENT)
     Route: 048
  4. ZOLADEX [Concomitant]
     Active Substance: GOSERELIN ACETATE
     Indication: Product used for unknown indication
     Dosage: UNK
     Route: 065
  5. FEMARA [Concomitant]
     Active Substance: LETROZOLE
     Indication: Product used for unknown indication
     Dosage: UNK
     Route: 065

REACTIONS (11)
  - Glossitis [Recovering/Resolving]
  - Xerophthalmia [Recovering/Resolving]
  - Aphthous ulcer [Recovering/Resolving]
  - Pruritus [Recovering/Resolving]
  - Stomatitis [Recovering/Resolving]
  - Rash papular [Recovering/Resolving]
  - Blood creatinine increased [Recovering/Resolving]
  - Hepatic cytolysis [Recovering/Resolving]
  - Toxic skin eruption [Recovering/Resolving]
  - Headache [Recovering/Resolving]
  - Eyelid rash [Recovering/Resolving]

NARRATIVE: CASE EVENT DATE: 20210204
